FAERS Safety Report 20473064 (Version 2)
Quarter: 2022Q2

REPORT INFORMATION
  Report Type: Report from Study
  Country: US (occurrence: None)
  Receive Date: 20220215
  Receipt Date: 20220607
  Transmission Date: 20220721
  Serious: Yes (Hospitalization)
  Sender: FDA-Public Use
  Company Number: US-ROCHE-3024986

PATIENT
  Age: 70 Year
  Sex: Female
  Weight: 77.5 kg

DRUGS (3)
  1. ATEZOLIZUMAB [Suspect]
     Active Substance: ATEZOLIZUMAB
     Indication: Ovarian epithelial cancer
     Dosage: 15/OCT/2019:LAST DOSE PRIOR TO SAE
     Route: 041
     Dates: start: 20190924
  2. CARBOPLATIN [Suspect]
     Active Substance: CARBOPLATIN
     Indication: Ovarian epithelial cancer
     Dosage: 15/OCT/2019:LAST DOSE PRIOR TO SAE
     Route: 042
     Dates: start: 20190924
  3. PACLITAXEL [Suspect]
     Active Substance: PACLITAXEL
     Indication: Ovarian epithelial cancer
     Dosage: 15/OCT/2019:LAST DOSE PRIOR TO SAE
     Route: 042
     Dates: start: 20190924

REACTIONS (1)
  - Neutrophil count decreased [Recovered/Resolved]

NARRATIVE: CASE EVENT DATE: 20191104
